FAERS Safety Report 16109454 (Version 1)
Quarter: 2019Q1

REPORT INFORMATION
  Report Type: Spontaneous
  Country: US (occurrence: US)
  Receive Date: 20190324
  Receipt Date: 20190324
  Transmission Date: 20190418
  Serious: No
  Sender: FDA-Public Use
  Company Number: US-JNJFOC-20190240117

PATIENT
  Sex: Male

DRUGS (7)
  1. CALAMINE [Concomitant]
     Active Substance: CALAMINE\FERRIC OXIDE RED\ZINC OXIDE
     Indication: RASH
     Route: 065
  2. OXYCODONE [Concomitant]
     Active Substance: OXYCODONE
     Indication: PAIN
     Route: 065
  3. PERCOCET [Concomitant]
     Active Substance: ACETAMINOPHEN\OXYCODONE HYDROCHLORIDE
     Indication: PAIN
     Dosage: 325/5 MG
     Route: 065
  4. MOTRIN [Suspect]
     Active Substance: IBUPROFEN
     Route: 065
  5. MOTRIN [Suspect]
     Active Substance: IBUPROFEN
     Indication: RASH
     Route: 065
  6. LAMISIL [Concomitant]
     Active Substance: TERBINAFINE HYDROCHLORIDE
     Indication: RASH
     Route: 065
  7. CHANTIX [Concomitant]
     Active Substance: VARENICLINE TARTRATE
     Indication: SMOKING CESSATION THERAPY
     Dosage: STARTED IN DEC 208 OR JAN 2019
     Route: 065

REACTIONS (1)
  - Product use in unapproved indication [Unknown]
